FAERS Safety Report 9748542 (Version 1)
Quarter: 2013Q4

REPORT INFORMATION
  Report Type: Spontaneous
  Country: BR (occurrence: BR)
  Receive Date: 20131212
  Receipt Date: 20131212
  Transmission Date: 20140711
  Serious: Yes (Other)
  Sender: FDA-Public Use
  Company Number: BR-EISAI INC-E3810-06804-SPO-BR

PATIENT
  Age: 88 Year
  Sex: Female
  Weight: 67 kg

DRUGS (1)
  1. PARIET (RABEPRAZOLE) [Suspect]
     Indication: PRODUCT USED FOR UNKNOWN INDICATION
     Dosage: UNKNOWN
     Route: 048
     Dates: start: 20131119, end: 20131120

REACTIONS (6)
  - Vision blurred [Recovering/Resolving]
  - Hypoaesthesia [Recovering/Resolving]
  - Facial pain [Recovering/Resolving]
  - Rhinitis [Recovering/Resolving]
  - Pain in extremity [Recovering/Resolving]
  - Headache [Recovering/Resolving]
